FAERS Safety Report 7090772-2 (Version None)
Quarter: 2010Q4

REPORT INFORMATION
  Report Type: 
  Country: None (occurrence: None)
  Receive Date: 20101012
  Receipt Date: 20100813
  Transmission Date: 20110411
  Serious: No
  Sender: FDA-Public Use
  Company Number: US_001257

PATIENT
  Sex: Male
  Weight: 79.5 kg

DRUGS (5)
  1. KUVAN [Suspect]
     Indication: PHENYLKETONURIA
     Dosage: 1500 MG QD ORAL, 800 MG QD ORAL, 1500 MG QD ORAL, 800 MG QD, ORAL
     Route: 048
     Dates: start: 20091101, end: 20100101
  2. KUVAN [Suspect]
     Indication: PHENYLKETONURIA
     Dosage: 1500 MG QD ORAL, 800 MG QD ORAL, 1500 MG QD ORAL, 800 MG QD, ORAL
     Route: 048
     Dates: start: 20100101, end: 20100301
  3. KUVAN [Suspect]
     Indication: PHENYLKETONURIA
     Dosage: 1500 MG QD ORAL, 800 MG QD ORAL, 1500 MG QD ORAL, 800 MG QD, ORAL
     Route: 048
     Dates: start: 20100301, end: 20100802
  4. KUVAN [Suspect]
     Indication: PHENYLKETONURIA
     Dosage: 1500 MG QD ORAL, 800 MG QD ORAL, 1500 MG QD ORAL, 800 MG QD, ORAL
     Route: 048
     Dates: start: 20100803, end: 20100813
  5. OMEPRAZOLE [Concomitant]

REACTIONS (2)
  - BLOOD PRESSURE INCREASED [None]
  - DERMATITIS ALLERGIC [None]
